FAERS Safety Report 8799498 (Version 1)
Quarter: 2012Q4

REPORT INFORMATION
  Report Type: 
  Country: US (occurrence: US)
  Receive Date: 20120919
  Receipt Date: 20120919
  Transmission Date: 20130627
  Serious: No
  Sender: FDA-Public Use
  Company Number: US-PFIZER INC-2012228495

PATIENT
  Age: 49 Year
  Sex: Male
  Weight: 77 kg

DRUGS (7)
  1. VFEND [Suspect]
     Indication: BRONCHOPULMONARY ASPERGILLOSIS
     Route: 048
  2. VFEND [Suspect]
     Indication: BRONCHOPULMONARY ASPERGILLOSIS
     Dosage: 300 mg, 2x/day
     Route: 042
     Dates: start: 20120727, end: 20120831
  3. VFEND [Suspect]
     Dosage: 500 mg, 2x/day
     Route: 042
     Dates: start: 20120831
  4. MULTIVITAMINS [Concomitant]
     Dosage: UNK, 1x/day
  5. GLUCOSAMINE [Concomitant]
     Dosage: UNK
  6. BENADRYL [Concomitant]
     Dosage: UNK, 1x/day
  7. MAGNESIUM [Concomitant]
     Dosage: UNK

REACTIONS (7)
  - Malabsorption [Unknown]
  - Drug level decreased [Unknown]
  - Rash [Not Recovered/Not Resolved]
  - Rash [Not Recovered/Not Resolved]
  - Rash pruritic [Not Recovered/Not Resolved]
  - Rash pruritic [Not Recovered/Not Resolved]
  - Red man syndrome [Unknown]
